FAERS Safety Report 14978688 (Version 1)
Quarter: 2018Q2

REPORT INFORMATION
  Report Type: Spontaneous
  Country: SE (occurrence: SE)
  Receive Date: 20180606
  Receipt Date: 20180606
  Transmission Date: 20180711
  Serious: Yes (Other)
  Sender: FDA-Public Use
  Company Number: SE-TEVA-2018-SE-900593

PATIENT
  Sex: Female

DRUGS (1)
  1. OLANZAPIN ACTAVIS [Suspect]
     Active Substance: OLANZAPINE
     Indication: DEPRESSION
     Route: 065
     Dates: end: 20180524

REACTIONS (2)
  - Type 2 diabetes mellitus [Unknown]
  - Liver disorder [Unknown]
